FAERS Safety Report 8473823-X (Version None)
Quarter: 2012Q2

REPORT INFORMATION
  Report Type: 
  Country: None (occurrence: None)
  Receive Date: 20120628
  Receipt Date: 20111221
  Transmission Date: 20120825
  Serious: Yes (Death)
  Sender: FDA-Public Use
  Company Number: US-MYLANLABS-2011S1025272

PATIENT
  Age: 56 Year
  Sex: Male

DRUGS (5)
  1. ANTIHYPERTENSIVES [Concomitant]
  2. CLOZAPINE [Suspect]
     Route: 048
     Dates: start: 20010908
  3. PREDNISONE TAB [Concomitant]
  4. NEXIUM [Concomitant]
  5. ADVAIR DISKUS 100/50 [Concomitant]

REACTIONS (1)
  - PNEUMONIA [None]
